FAERS Safety Report 6676591-7 (Version None)
Quarter: 2010Q2

REPORT INFORMATION
  Report Type: 
  Country: None (occurrence: None)
  Receive Date: 20100408
  Receipt Date: 20100323
  Transmission Date: 20101027
  Serious: Yes (Other)
  Sender: FDA-Public Use
  Company Number: TRP_06824_2010

PATIENT
  Sex: Male

DRUGS (3)
  1. INFERGEN [Suspect]
     Indication: HEPATITIS
     Dosage: 15 MCG;
     Dates: start: 20091125
  2. RIBAVIRIN [Suspect]
     Indication: HEPATITIS C
     Dosage: 1200 MG, (400 MG BID);
     Dates: start: 20091125, end: 20100222
  3. RIBAVIRIN [Suspect]
     Indication: HEPATITIS C
     Dosage: 1200 MG, (400 MG BID);
     Dates: start: 20100222, end: 20100323

REACTIONS (23)
  - ABDOMINAL DISCOMFORT [None]
  - ABDOMINAL DISTENSION [None]
  - ABDOMINAL PAIN UPPER [None]
  - AGITATION [None]
  - ANAEMIA [None]
  - CHEST PAIN [None]
  - COUGH [None]
  - CRYING [None]
  - DECREASED APPETITE [None]
  - DIZZINESS [None]
  - DYSPNOEA [None]
  - EMOTIONAL DISORDER [None]
  - FATIGUE [None]
  - FLATULENCE [None]
  - HAEMOLYTIC ANAEMIA [None]
  - LEUKOPENIA [None]
  - NAUSEA [None]
  - NEUTROPENIA [None]
  - PAIN [None]
  - PERIPHERAL COLDNESS [None]
  - SINUSITIS [None]
  - SPUTUM DISCOLOURED [None]
  - UNEVALUABLE EVENT [None]
